FAERS Safety Report 7024438-1 (Version None)
Quarter: 2010Q4

REPORT INFORMATION
  Report Type: 
  Country: None (occurrence: None)
  Receive Date: 20101001
  Receipt Date: 20100923
  Transmission Date: 20110411
  Serious: Yes (Other)
  Sender: FDA-Public Use
  Company Number: DE-PFIZER INC-2010119605

PATIENT
  Age: 67 Year
  Sex: Female

DRUGS (4)
  1. SORTIS [Suspect]
     Dosage: 5 MG, UNK
     Route: 048
  2. SORTIS [Suspect]
     Dosage: 10 MG, UNK
     Route: 048
  3. SORTIS [Suspect]
     Dosage: 2 X 20 MG, UNK
     Route: 048
     Dates: start: 20100701
  4. EZETROL [Concomitant]
     Dosage: UNK
     Dates: start: 20100701

REACTIONS (6)
  - BLOOD CREATINE PHOSPHOKINASE INCREASED [None]
  - ENTHESOPATHY [None]
  - MUSCULAR WEAKNESS [None]
  - MUSCULOSKELETAL PAIN [None]
  - MYALGIA [None]
  - RHABDOMYOLYSIS [None]
